FAERS Safety Report 26088310 (Version 1)
Quarter: 2025Q4

REPORT INFORMATION
  Report Type: Spontaneous
  Country: US (occurrence: None)
  Receive Date: 20251125
  Receipt Date: 20251125
  Transmission Date: 20260118
  Serious: Yes (Other)
  Sender: FDA-CTU
  Company Number: None

PATIENT
  Age: 62 Year
  Sex: Female
  Weight: 81 kg

DRUGS (16)
  1. GUANFACINE [Suspect]
     Active Substance: GUANFACINE
     Indication: Attention deficit hyperactivity disorder
     Dosage: OTHER QUANTITY : 1 TABLET(S);?FREQUENCY : AT BEDTIME;?
     Route: 048
     Dates: start: 20250701, end: 20251029
  2. GUANFACINE [Suspect]
     Active Substance: GUANFACINE
  3. NALTREXONE [Concomitant]
     Active Substance: NALTREXONE
  4. NPThyroid [Concomitant]
  5. METFORMIN [Concomitant]
     Active Substance: METFORMIN HYDROCHLORIDE
  6. QUETIAPINE [Concomitant]
     Active Substance: QUETIAPINE
  7. SUMATRIPTAN [Concomitant]
     Active Substance: SUMATRIPTAN
  8. LORAZEPAM [Concomitant]
     Active Substance: LORAZEPAM
  9. VITAMINS [Concomitant]
     Active Substance: VITAMINS
  10. Vitamin D3-K2 [Concomitant]
  11. probiotcs [Concomitant]
  12. VITAMIN C [Concomitant]
     Active Substance: ASCORBIC ACID
  13. VITAMIN B COMPLEX [Concomitant]
     Active Substance: CYANOCOBALAMIN\DEXPANTHENOL\NIACINAMIDE\PYRIDOXINE HYDROCHLORIDE\RIBOFLAVIN 5^-PHOSPHATE SODIUM\THIA
  14. HERBALS\TURMERIC [Concomitant]
     Active Substance: HERBALS\TURMERIC
  15. FAMOTIDINE [Concomitant]
     Active Substance: FAMOTIDINE
  16. ADEMETIONINE [Concomitant]
     Active Substance: ADEMETIONINE

REACTIONS (4)
  - Mental disorder [None]
  - Feeling abnormal [None]
  - Anxiety [None]
  - Major depression [None]

NARRATIVE: CASE EVENT DATE: 20251021
